FAERS Safety Report 7258051-8 (Version None)
Quarter: 2011Q1

REPORT INFORMATION
  Report Type: 
  Country: None (occurrence: None)
  Receive Date: 20110129
  Receipt Date: 20100611
  Transmission Date: 20110831
  Serious: No
  Sender: FDA-Public Use
  Company Number: US-ABBOTT-10P-163-0652022-00

PATIENT
  Age: 42 Year
  Sex: Female

DRUGS (1)
  1. HUMIRA [Suspect]
     Indication: CROHN'S DISEASE
     Dates: start: 20100201

REACTIONS (5)
  - BALANCE DISORDER [None]
  - HEART RATE IRREGULAR [None]
  - HYPOAESTHESIA [None]
  - FEELING ABNORMAL [None]
  - AURA [None]
